FAERS Safety Report 9196672 (Version 2)
Quarter: 2013Q2

REPORT INFORMATION
  Report Type: Spontaneous
  Country: BR (occurrence: BR)
  Receive Date: 20130328
  Receipt Date: 20130418
  Transmission Date: 20140414
  Serious: Yes (Hospitalization, Other)
  Sender: FDA-Public Use
  Company Number: BR-AMGEN-BRASP2013020787

PATIENT
  Age: 57 Year
  Sex: Male
  Weight: 72 kg

DRUGS (6)
  1. MIMPARA [Suspect]
     Indication: SECONDARY HYPERTHYROIDISM
     Dosage: 60 MG, QD
     Route: 048
     Dates: start: 201211, end: 20130312
  2. OMEPRAZOLE [Concomitant]
     Indication: GASTRITIS
     Dosage: 20 MG, QD
     Route: 048
  3. ENALAPRIL [Concomitant]
     Indication: HYPERTENSION
     Dosage: 40 MG, QD
     Route: 048
  4. ATENOLOL [Concomitant]
     Indication: HYPERTENSION
     Dosage: 25 MG, BID
     Route: 048
  5. ERYTHROPOIETIN [Concomitant]
     Indication: ANAEMIA
     Dosage: 4000 UNIT, 3 TIMES/WK
     Route: 058
  6. SEVELAMER [Concomitant]
     Indication: HYPERPHOSPHATAEMIA
     Dosage: 800 MG, TID
     Route: 048

REACTIONS (1)
  - Pancreatitis acute [Recovered/Resolved]
